FAERS Safety Report 19427392 (Version 1)
Quarter: 2021Q2

REPORT INFORMATION
  Report Type: Spontaneous
  Country: US (occurrence: US)
  Receive Date: 20210616
  Receipt Date: 20210616
  Transmission Date: 20210717
  Serious: Yes (Death)
  Sender: FDA-Public Use
  Company Number: None

PATIENT
  Age: 2 Month
  Sex: Female
  Weight: 2.7 kg

DRUGS (1)
  1. PROZAC [Suspect]
     Active Substance: FLUOXETINE HYDROCHLORIDE
     Indication: DEPRESSION
     Dosage: ?          QUANTITY:120 TABLET(S);?
     Route: 048
     Dates: start: 20190103, end: 20191231

REACTIONS (5)
  - Foetal exposure during pregnancy [None]
  - Maternal exposure during pregnancy [None]
  - Low birth weight baby [None]
  - Sudden infant death syndrome [None]
  - Small for dates baby [None]

NARRATIVE: CASE EVENT DATE: 20191031
